FAERS Safety Report 4625024-0 (Version None)
Quarter: 2005Q2

REPORT INFORMATION
  Report Type: 
  Country: None (occurrence: None)
  Receive Date: 20050325
  Receipt Date: 20050121
  Transmission Date: 20051028
  Serious: No
  Sender: FDA-Public Use
  Company Number: US_0502112315

PATIENT
  Age: 70 Year
  Sex: Female

DRUGS (26)
  1. FORTEO [Suspect]
     Indication: OSTEOPOROSIS
     Dosage: 20 UG DAY
     Dates: start: 20050107
  2. PROZAC [Suspect]
     Indication: DEPRESSION
     Dosage: 20 MG/2 DAY
  3. CALCIUM GLUCONATE [Concomitant]
  4. CALTRATE [Concomitant]
  5. ZANAFLEX [Concomitant]
  6. ALDACTONE [Concomitant]
  7. LASIX [Concomitant]
  8. COUMADIN [Concomitant]
  9. ZOCOR (SIMVASTATIN RATIOPHARM) [Concomitant]
  10. ATENOLOL [Concomitant]
  11. LOPERAMIDE HCL [Concomitant]
  12. LACTAID (TILACTASE) [Concomitant]
  13. VITAMIN E [Concomitant]
  14. VITAMIN C [Concomitant]
  15. MULTICENTRUM [Concomitant]
  16. NEURONTIN (GABAPENTIN PFIZER) [Concomitant]
  17. PERCOCET [Concomitant]
  18. GLUCOSAMINE [Concomitant]
  19. FIORINAL [Concomitant]
  20. ADVAIR DISKUS 100/50 [Concomitant]
  21. ALBUTEROL [Concomitant]
  22. XYLOCAINE VISCOUS [Concomitant]
  23. DIFLUCAN [Concomitant]
  24. ACIPHEX [Concomitant]
  25. ATIVAN [Concomitant]
  26. BENADRYL [Concomitant]

REACTIONS (7)
  - BONE PAIN [None]
  - GLOSSODYNIA [None]
  - INJECTION SITE ERYTHEMA [None]
  - INJECTION SITE IRRITATION [None]
  - PRURITUS GENERALISED [None]
  - SWELLING FACE [None]
  - TONGUE DISCOLOURATION [None]
